FAERS Safety Report 4632749-X (Version None)
Quarter: 2005Q2

REPORT INFORMATION
  Report Type: 
  Country: None (occurrence: None)
  Receive Date: 20050408
  Receipt Date: 20050408
  Transmission Date: 20051028
  Serious: Yes (Life-Threatening, Other)
  Sender: FDA-Public Use
  Company Number: None

PATIENT
  Sex: Female
  Weight: 56.6996 kg

DRUGS (1)
  1. XANAX [Suspect]
     Indication: ANXIETY
     Dosage: .25MG   TID   ORAL
     Route: 048
     Dates: start: 20020304, end: 20020429

REACTIONS (19)
  - ANXIETY [None]
  - DEPERSONALISATION [None]
  - DEREALISATION [None]
  - DIZZINESS [None]
  - DRUG WITHDRAWAL SYNDROME [None]
  - EXTRASYSTOLES [None]
  - HEADACHE [None]
  - HYPOTHYROIDISM [None]
  - INSOMNIA [None]
  - MENTAL DISORDER [None]
  - MOTOR DYSFUNCTION [None]
  - PALPITATIONS [None]
  - PANIC ATTACK [None]
  - PANIC DISORDER [None]
  - SENSORY DISTURBANCE [None]
  - SLEEP TERROR [None]
  - STRESS [None]
  - TREMOR [None]
  - VISUAL DISTURBANCE [None]
